FAERS Safety Report 5025836-8 (Version None)
Quarter: 2006Q2

REPORT INFORMATION
  Report Type: 
  Country: None (occurrence: None)
  Receive Date: 20060614
  Receipt Date: 20060609
  Transmission Date: 20061013
  Serious: Yes (Hospitalization)
  Sender: FDA-Public Use
  Company Number: US-SANOFI-SYNTHELABO-F03200600124

PATIENT
  Age: 830 Month
  Sex: Female

DRUGS (4)
  1. OXALIPLATIN [Suspect]
     Indication: COLORECTAL CANCER
     Route: 042
     Dates: start: 20060403, end: 20060403
  2. LEUCOVORIN [Suspect]
     Indication: COLORECTAL CANCER
     Route: 042
     Dates: start: 20060403, end: 20060403
  3. ERBITUX [Suspect]
     Indication: COLORECTAL CANCER
     Dosage: 400 MG/M2 INITIAL DOSE FOLLOWED BY 250 MG/M2 WEEKLY
     Route: 042
     Dates: start: 20060101, end: 20060101
  4. FLUOROURACIL [Suspect]
     Indication: COLORECTAL CANCER
     Dosage: 400 MG/M2 INTRAVENOUS BOLUS FOLLOWED BY 2400 MG/M2 OVER 46 TO 48 HOURS EVERY TWO WEEKS
     Route: 042
     Dates: start: 20060403, end: 20060403

REACTIONS (2)
  - PERIPHERAL MOTOR NEUROPATHY [None]
  - PERIPHERAL SENSORY NEUROPATHY [None]
